FAERS Safety Report 16212417 (Version 7)
Quarter: 2023Q2

REPORT INFORMATION
  Report Type: Spontaneous
  Country: US (occurrence: US)
  Receive Date: 20190418
  Receipt Date: 20230602
  Transmission Date: 20230721
  Serious: No
  Sender: FDA-Public Use
  Company Number: US-PFIZER INC-2019159947

PATIENT
  Age: 74 Year
  Sex: Female

DRUGS (1)
  1. PREMPRO [Suspect]
     Active Substance: ESTROGENS, CONJUGATED\MEDROXYPROGESTERONE ACETATE
     Indication: Hormone replacement therapy
     Dosage: UNK

REACTIONS (6)
  - Product dispensing error [Unknown]
  - Dyspnoea [Unknown]
  - Anxiety [Unknown]
  - Restlessness [Unknown]
  - Insomnia [Unknown]
  - Nervousness [Unknown]
